FAERS Safety Report 10281379 (Version 1)
Quarter: 2014Q3

REPORT INFORMATION
  Report Type: Spontaneous
  Country: US (occurrence: None)
  Receive Date: 20140702
  Receipt Date: 20140702
  Transmission Date: 20150326
  Serious: Yes (Disabling)
  Sender: FDA-Public Use
  Company Number: None

PATIENT
  Age: 47 Year
  Sex: Female
  Weight: 132.45 kg

DRUGS (2)
  1. CYMBALTA [Suspect]
     Active Substance: DULOXETINE HYDROCHLORIDE
     Indication: DEPRESSION
     Dosage: 2 CAPSULES ONCE DAILY TAKEN BY MOUTH
     Route: 048
  2. CYMBALTA [Suspect]
     Active Substance: DULOXETINE HYDROCHLORIDE
     Indication: ARTHRALGIA
     Dosage: 2 CAPSULES ONCE DAILY TAKEN BY MOUTH
     Route: 048

REACTIONS (10)
  - Anxiety [None]
  - Nausea [None]
  - Abdominal pain lower [None]
  - Palpitations [None]
  - Depression [None]
  - Fatigue [None]
  - Panic reaction [None]
  - Drug withdrawal syndrome [None]
  - Arthritis [None]
  - Suicidal ideation [None]

NARRATIVE: CASE EVENT DATE: 20140623
